FAERS Safety Report 6268784-8 (Version None)
Quarter: 2009Q3

REPORT INFORMATION
  Report Type: 
  Country: None (occurrence: None)
  Receive Date: 20090710
  Receipt Date: 20090710
  Transmission Date: 20100115
  Serious: No
  Sender: FDA-Public Use
  Company Number: None

PATIENT
  Age: 62 Year
  Sex: Female
  Weight: 91.6266 kg

DRUGS (1)
  1. ZYRTEC [Suspect]
     Indication: MULTIPLE ALLERGIES
     Dosage: 1 TABLET DAILY
     Dates: start: 20090629, end: 20090703

REACTIONS (3)
  - COUGH [None]
  - DYSGEUSIA [None]
  - PARANASAL SINUS HYPERSECRETION [None]
